FAERS Safety Report 20979846 (Version 2)
Quarter: 2022Q2

REPORT INFORMATION
  Report Type: Report from Study
  Country: NL (occurrence: NL)
  Receive Date: 20220620
  Receipt Date: 20220621
  Transmission Date: 20220720
  Serious: Yes (Other)
  Sender: FDA-Public Use
  Company Number: NL-ABBVIE-22K-114-4436602-00

PATIENT
  Age: 74 Year
  Sex: Male

DRUGS (5)
  1. CARBIDOPA\LEVODOPA [Suspect]
     Active Substance: CARBIDOPA\LEVODOPA
     Indication: Parkinson^s disease
     Route: 050
  2. CARBIDOPA\LEVODOPA [Suspect]
     Active Substance: CARBIDOPA\LEVODOPA
     Dosage: MD 7.1 ML; CD 3.8 ML/HR; ED 1.0 ML, END: 1.5 ML, CND: 2.9 ML/HR
     Route: 050
  3. DIPROSONE [Concomitant]
     Active Substance: BETAMETHASONE DIPROPIONATE
     Indication: Product used for unknown indication
  4. DICLOFENAC [Concomitant]
     Active Substance: DICLOFENAC
     Indication: Product used for unknown indication
  5. RIVOTRIL [Concomitant]
     Active Substance: CLONAZEPAM
     Indication: Fear

REACTIONS (3)
  - Skin cancer [Unknown]
  - Device connection issue [Recovered/Resolved]
  - Parkinson^s disease [Not Recovered/Not Resolved]

NARRATIVE: CASE EVENT DATE: 20220615
